FAERS Safety Report 19845838 (Version 2)
Quarter: 2022Q1

REPORT INFORMATION
  Report Type: Other
  Country: BE (occurrence: None)
  Receive Date: 20210916
  Receipt Date: 20220113
  Transmission Date: 20220423
  Serious: Yes (Other)
  Sender: FDA-Public Use
  Company Number: BE-ROCHE-2909784

PATIENT
  Age: 68 Year
  Sex: Female
  Weight: 87 kg

DRUGS (1)
  1. ALECTINIB [Suspect]
     Active Substance: ALECTINIB
     Indication: Non-small cell lung cancer
     Route: 048
     Dates: start: 20210817

REACTIONS (1)
  - Haemolysis [Not Recovered/Not Resolved]

NARRATIVE: CASE EVENT DATE: 20210908
